FAERS Safety Report 5640438-8 (Version None)
Quarter: 2008Q1

REPORT INFORMATION
  Report Type: 
  Country: None (occurrence: None)
  Receive Date: 20080227
  Receipt Date: 20080123
  Transmission Date: 20080703
  Serious: No
  Sender: FDA-Public Use
  Company Number: US-BAXTER-2008BH000416

PATIENT
  Age: 88 Year
  Sex: Female
  Weight: 64 kg

DRUGS (2)
  1. HEPARIN SODIUM [Suspect]
     Indication: PROPHYLAXIS
     Route: 042
     Dates: start: 20080104, end: 20080104
  2. HEPARIN SODIUM [Suspect]
     Route: 042
     Dates: start: 20070104, end: 20070104

REACTIONS (3)
  - BLOOD PRESSURE DECREASED [None]
  - DYSPNOEA [None]
  - PALLOR [None]
